FAERS Safety Report 16312662 (Version 3)
Quarter: 2019Q3

REPORT INFORMATION
  Report Type: Spontaneous
  Country: US (occurrence: US)
  Receive Date: 20190515
  Receipt Date: 20190710
  Transmission Date: 20191004
  Serious: No
  Sender: FDA-Public Use
  Company Number: US-TEVA-2019-US-1048649

PATIENT

DRUGS (1)
  1. TEVA TOLTERODINE TARTRATE ER 4 MG [Suspect]
     Active Substance: TOLTERODINE TARTRATE
     Indication: MICTURITION URGENCY
     Dosage: EXTENDED RELEASE
     Route: 065

REACTIONS (4)
  - Drug ineffective [Unknown]
  - Urinary incontinence [Unknown]
  - Pollakiuria [Unknown]
  - Product substitution issue [Unknown]
